FAERS Safety Report 7029362-6 (Version None)
Quarter: 2010Q4

REPORT INFORMATION
  Report Type: 
  Country: None (occurrence: None)
  Receive Date: 20101005
  Receipt Date: 20100921
  Transmission Date: 20110411
  Serious: Yes (Death)
  Sender: FDA-Public Use
  Company Number: GB-MYLANLABS-2010S1017818

PATIENT
  Age: 37 Year
  Sex: Female

DRUGS (4)
  1. VENLAFAXINE HCL [Suspect]
     Indication: PRODUCT USED FOR UNKNOWN INDICATION
  2. DIHYDROCODEINE [Suspect]
     Indication: PRODUCT USED FOR UNKNOWN INDICATION
  3. CLOZAPINE [Suspect]
     Indication: PRODUCT USED FOR UNKNOWN INDICATION
  4. CLOZAPINE [Suspect]

REACTIONS (6)
  - ABDOMINAL PAIN UPPER [None]
  - DIARRHOEA [None]
  - DRUG TOXICITY [None]
  - HEPATIC NECROSIS [None]
  - HEPATIC STEATOSIS [None]
  - SOMNOLENCE [None]
